FAERS Safety Report 16197579 (Version 1)
Quarter: 2019Q2

REPORT INFORMATION
  Report Type: Spontaneous
  Country: BR (occurrence: BR)
  Receive Date: 20190415
  Receipt Date: 20190415
  Transmission Date: 20190711
  Serious: Yes (Other)
  Sender: FDA-Public Use
  Company Number: BR-PFIZER INC-2019158020

PATIENT
  Age: 93 Year
  Sex: Female
  Weight: 60 kg

DRUGS (5)
  1. PANTOZOL [Suspect]
     Active Substance: PANTOPRAZOLE SODIUM
     Indication: PROPHYLAXIS
     Dosage: 20 MILLIGRAM, QD
     Route: 048
     Dates: start: 20190203
  2. CALCIUM + VITAMIN D [CALCIUM CARBONATE;COLECALCIFEROL] [Concomitant]
     Indication: OSTEOPOROSIS
     Dosage: 5 GTT DROPS, BID
     Route: 048
     Dates: start: 1999
  3. LANTUS [Concomitant]
     Active Substance: INSULIN GLARGINE
     Indication: DIABETES MELLITUS
     Dosage: UNK UNK, QD
     Route: 058
     Dates: start: 20190203
  4. ENTEROGERMINA [BACILLUS SUBTILIS] [Concomitant]
     Indication: DIARRHOEA
     Dosage: UNK, QD
     Route: 048
     Dates: start: 20190220
  5. MESACOL MMX [Suspect]
     Active Substance: MESALAMINE
     Indication: MUCOSAL INFLAMMATION
     Dosage: 800 MILLIGRAM, TID (FOR 3 WEEKS)
     Route: 048
     Dates: start: 20190321

REACTIONS (3)
  - Product residue present [Unknown]
  - Femur fracture [Unknown]
  - Faeces discoloured [Recovering/Resolving]

NARRATIVE: CASE EVENT DATE: 20190203
